FAERS Safety Report 12877239 (Version 1)
Quarter: 2016Q4

REPORT INFORMATION
  Report Type: Spontaneous
  Country: US (occurrence: US)
  Receive Date: 20161023
  Receipt Date: 20161023
  Transmission Date: 20170207
  Serious: Yes (Other)
  Sender: FDA-Public Use
  Company Number: None

PATIENT
  Age: 71 Year
  Sex: Male
  Weight: 92.25 kg

DRUGS (10)
  1. LISINOPRIL. [Concomitant]
     Active Substance: LISINOPRIL
  2. BRILINTA [Concomitant]
     Active Substance: TICAGRELOR
  3. LIVALO [Suspect]
     Active Substance: PITAVASTATIN CALCIUM
     Indication: BLOOD CHOLESTEROL INCREASED
     Dosage: ?          QUANTITY:1 TABLET(S);?
     Route: 048
     Dates: start: 20150420, end: 20161023
  4. BABY ASPIRIN [Concomitant]
     Active Substance: ASPIRIN
  5. NIFEDIPINE. [Concomitant]
     Active Substance: NIFEDIPINE
  6. FISH OIL [Concomitant]
     Active Substance: FISH OIL
  7. METOPROL SUCCINATE ER [Concomitant]
  8. ZETIA [Concomitant]
     Active Substance: EZETIMIBE
  9. POMEGRANATE EXTRACT [Concomitant]
  10. COQ10 [Concomitant]
     Active Substance: UBIDECARENONE

REACTIONS (4)
  - Neck pain [None]
  - Insomnia [None]
  - Myocardial infarction [None]
  - Musculoskeletal stiffness [None]

NARRATIVE: CASE EVENT DATE: 20160914
